FAERS Safety Report 17488090 (Version 1)
Quarter: 2020Q1

REPORT INFORMATION
  Report Type: Spontaneous
  Country: US (occurrence: US)
  Receive Date: 20200303
  Receipt Date: 20200303
  Transmission Date: 20200409
  Serious: No
  Sender: FDA-Public Use
  Company Number: US-PFIZER INC-2019000741

PATIENT
  Age: 44 Year
  Sex: Female

DRUGS (4)
  1. LYRICA [Suspect]
     Active Substance: PREGABALIN
     Indication: MENOPAUSE
     Dosage: 200 MG, DAILY
     Route: 048
     Dates: start: 20151109
  2. LYRICA [Suspect]
     Active Substance: PREGABALIN
     Indication: NEURALGIA
  3. LYRICA [Suspect]
     Active Substance: PREGABALIN
     Indication: PAIN
  4. LYRICA [Suspect]
     Active Substance: PREGABALIN
     Indication: MASTOIDITIS

REACTIONS (3)
  - Migraine [Unknown]
  - Withdrawal syndrome [Unknown]
  - Headache [Unknown]
